FAERS Safety Report 22391047 (Version 1)
Quarter: 2023Q2

REPORT INFORMATION
  Report Type: Other
  Country: GB (occurrence: GB)
  Receive Date: 20230601
  Receipt Date: 20230601
  Transmission Date: 20230722
  Serious: Yes (Other)
  Sender: FDA-Public Use
  Company Number: GB-CELLTRION INC.-2023GB011132

PATIENT

DRUGS (14)
  1. RITUXIMAB [Suspect]
     Active Substance: RITUXIMAB
     Indication: Diffuse large B-cell lymphoma
     Dosage: FIRST LINE SYSTEMIC TREATMENT WITH CHEMO (IMMUNO)THERAPY, R-CHOP (RITUXIMAB, CYCLOPHOSPHAMIDE, DOXOR
     Route: 065
     Dates: start: 20210225, end: 20210715
  2. RITUXIMAB [Suspect]
     Active Substance: RITUXIMAB
     Dosage: FIRST LINE SYSTEMIC TREATMENT WITH CHEMO (IMMUNO)THERAPY, R-CHOP (RITUXIMAB, CYCLOPHOSPHAMIDE, DOXOR
     Route: 065
     Dates: start: 20210225, end: 20210715
  3. RITUXIMAB [Suspect]
     Active Substance: RITUXIMAB
     Dosage: SECOND LINE OF SYSTEMIC TREATMENT WITH R-ICE (RITUXIMAB, IFOSFAMIDE, CARBOPLATIN AND ETOPOSIDE)
     Route: 065
     Dates: start: 20220901, end: 20221101
  4. RITUXIMAB [Suspect]
     Active Substance: RITUXIMAB
     Dosage: SECOND LINE OF SYSTEMIC TREATMENT WITH R-ICE (RITUXIMAB, IFOSFAMIDE, CARBOPLATIN AND ETOPOSIDE)
     Route: 065
     Dates: start: 20220901, end: 20221101
  5. RITUXIMAB [Suspect]
     Active Substance: RITUXIMAB
     Dosage: THIRD LINE OF SYSTEMIC TREATMENT WITH P-BR (POLATUZUMAB, BENDAMUSTINE AND RITUXIMAB BIOSIMILAR) 2 CY
     Route: 065
     Dates: start: 20230401, end: 20230508
  6. BENDAMUSTINE [Suspect]
     Active Substance: BENDAMUSTINE
     Indication: Diffuse large B-cell lymphoma
     Dosage: THIRD LINE OF SYSTEMIC TREATMENT WITH P-BR (POLATUZUMAB, BENDAMUSTINE AND RITUXIMAB BIOSIMILAR) 2 CY
     Route: 065
     Dates: start: 20230401, end: 20230508
  7. CARBOPLATIN [Suspect]
     Active Substance: CARBOPLATIN
     Indication: Diffuse large B-cell lymphoma
     Dosage: SECOND LINE OF SYSTEMIC TREATMENT WITH R-ICE (RITUXIMAB, IFOSFAMIDE, CARBOPLATIN AND ETOPOSIDE)
     Route: 065
     Dates: start: 20220901, end: 20221101
  8. CYCLOPHOSPHAMIDE [Suspect]
     Active Substance: CYCLOPHOSPHAMIDE
     Indication: Diffuse large B-cell lymphoma
     Dosage: FIRST LINE SYSTEMIC TREATMENT WITH CHEMO (IMMUNO)THERAPY, R-CHOP (RITUXIMAB, CYCLOPHOSPHAMIDE, DOXOR
     Route: 065
     Dates: start: 20210225, end: 20210715
  9. DOXORUBICIN [Suspect]
     Active Substance: DOXORUBICIN
     Indication: Diffuse large B-cell lymphoma
     Dosage: FIRST LINE SYSTEMIC TREATMENT WITH CHEMO (IMMUNO)THERAPY, R-CHOP (RITUXIMAB, CYCLOPHOSPHAMIDE, DOXOR
     Route: 065
     Dates: start: 20210225, end: 20210715
  10. ETOPOSIDE [Suspect]
     Active Substance: ETOPOSIDE
     Indication: Diffuse large B-cell lymphoma
     Dosage: SECOND LINE OF SYSTEMIC TREATMENT WITH R-ICE (RITUXIMAB, IFOSFAMIDE, CARBOPLATIN AND ETOPOSIDE)
     Route: 065
     Dates: start: 20220901, end: 20221101
  11. IFOSFAMIDE [Suspect]
     Active Substance: IFOSFAMIDE
     Indication: Diffuse large B-cell lymphoma
     Dosage: SECOND LINE OF SYSTEMIC TREATMENT WITH R-ICE (RITUXIMAB, IFOSFAMIDE, CARBOPLATIN AND ETOPOSIDE)
     Route: 065
     Dates: start: 20220901, end: 20221101
  12. POLIVY [Suspect]
     Active Substance: POLATUZUMAB VEDOTIN-PIIQ
     Indication: Diffuse large B-cell lymphoma
     Dosage: THIRD LINE OF SYSTEMIC TREATMENT WITH P-BR (POLATUZUMAB, BENDAMUSTINE AND RITUXIMAB BIOSIMILAR) 2 CY
     Route: 065
     Dates: start: 20230401, end: 20230508
  13. PREDNISONE [Suspect]
     Active Substance: PREDNISONE
     Indication: Diffuse large B-cell lymphoma
     Dosage: FIRST LINE SYSTEMIC TREATMENT WITH CHEMO (IMMUNO)THERAPY, R-CHOP (RITUXIMAB, CYCLOPHOSPHAMIDE, DOXOR
     Route: 065
     Dates: start: 20210225, end: 20210715
  14. VINCRISTINE [Suspect]
     Active Substance: VINCRISTINE
     Indication: Diffuse large B-cell lymphoma
     Dosage: FIRST LINE SYSTEMIC TREATMENT WITH CHEMO (IMMUNO)THERAPY, R-CHOP (RITUXIMAB, CYCLOPHOSPHAMIDE, DOXOR
     Route: 065
     Dates: start: 20210225, end: 20210715

REACTIONS (2)
  - Disease progression [Unknown]
  - Product use issue [Unknown]
